FAERS Safety Report 5008613-3 (Version None)
Quarter: 2006Q2

REPORT INFORMATION
  Report Type: 
  Country: None (occurrence: None)
  Receive Date: 20060523
  Receipt Date: 20060512
  Transmission Date: 20061013
  Serious: Yes (Other)
  Sender: FDA-Public Use
  Company Number: ES-ROCHE-447652

PATIENT
  Sex: Female

DRUGS (1)
  1. KETOROLAC TROMETHAMINE [Suspect]
     Indication: DRUG USE FOR UNKNOWN INDICATION
     Dosage: REPORTED AS KETOROLAC, TROMETAMOL.
     Route: 065
     Dates: start: 20051115

REACTIONS (1)
  - CONGESTIVE CARDIOMYOPATHY [None]
